FAERS Safety Report 22597492 (Version 1)
Quarter: 2023Q2

REPORT INFORMATION
  Report Type: Other
  Country: None (occurrence: TN)
  Receive Date: 20230614
  Receipt Date: 20230614
  Transmission Date: 20230722
  Serious: Yes (Other)
  Sender: FDA-Public Use
  Company Number: TN-BIOLOGICAL E. LTD-2142675

PATIENT
  Age: 56 Year
  Sex: Male

DRUGS (2)
  1. HEPARIN SODIUM [Suspect]
     Active Substance: HEPARIN SODIUM
     Indication: Systemic lupus erythematosus
     Route: 042
  2. ILOPROST [Suspect]
     Active Substance: ILOPROST
     Route: 042

REACTIONS (1)
  - Drug ineffective [Unknown]
